FAERS Safety Report 4897755-9 (Version None)
Quarter: 2006Q1

REPORT INFORMATION
  Report Type: 
  Country: None (occurrence: None)
  Receive Date: 20060130
  Receipt Date: 20060118
  Transmission Date: 20060701
  Serious: Yes (Other)
  Sender: FDA-Public Use
  Company Number: HQWYE431619JAN06

PATIENT
  Age: 57 Year
  Sex: Female
  Weight: 58.11 kg

DRUGS (3)
  1. EFFEXOR XR [Suspect]
     Indication: DEPRESSION
     Dosage: 75 MG 3X PER 1 DAY, ORAL
     Route: 048
     Dates: start: 20030101
  2. LAMICTAL [Suspect]
     Indication: CONVULSION
     Dosage: 150 + 300 MG 1X PER 1 DAY
     Dates: start: 20051001, end: 20060101
  3. LAMICTAL [Suspect]
     Indication: CONVULSION
     Dosage: 150 + 300 MG 1X PER 1 DAY
     Dates: start: 20060101

REACTIONS (11)
  - AMNESIA [None]
  - CONVULSION [None]
  - DISTURBANCE IN ATTENTION [None]
  - DIZZINESS [None]
  - DRUG INEFFECTIVE [None]
  - DRUG INTERACTION [None]
  - DRUG WITHDRAWAL SYNDROME [None]
  - FEELING DRUNK [None]
  - NAUSEA [None]
  - SUICIDAL IDEATION [None]
  - THREAT OF REDUNDANCY [None]
